FAERS Safety Report 11272131 (Version 1)
Quarter: 2015Q3

REPORT INFORMATION
  Report Type: Other
  Country: CN (occurrence: CN)
  Receive Date: 20150715
  Receipt Date: 20150715
  Transmission Date: 20151125
  Serious: Yes (Hospitalization)
  Sender: FDA-Public Use
  Company Number: CN-LUPIN PHARMACEUTICALS INC.-2015-02105

PATIENT
  Age: 9 Year
  Sex: Female

DRUGS (1)
  1. LAMOTRIGINE. [Suspect]
     Active Substance: LAMOTRIGINE
     Indication: EPILEPSY
     Dosage: DOUBLE DOSE
     Route: 048

REACTIONS (3)
  - Stevens-Johnson syndrome [Recovering/Resolving]
  - Extra dose administered [Unknown]
  - Obliterative bronchiolitis [Recovering/Resolving]
